FAERS Safety Report 13535275 (Version 3)
Quarter: 2017Q3

REPORT INFORMATION
  Report Type: Spontaneous
  Country: FR (occurrence: FR)
  Receive Date: 20170511
  Receipt Date: 20170824
  Transmission Date: 20171127
  Serious: Yes (Hospitalization, Other)
  Sender: FDA-Public Use
  Company Number: FR-009507513-1705FRA003460

PATIENT
  Age: 56 Year
  Sex: Female

DRUGS (8)
  1. EFFEXOR [Concomitant]
     Active Substance: VENLAFAXINE HYDROCHLORIDE
     Dosage: FORMULATION: EXTENDED RELEASE CAPSULE, 37.5 MG, TID, FOR A MONTH AND A HALF
     Route: 048
  2. CACIT VITAMINE D3 [Concomitant]
     Active Substance: CALCIUM CARBONATE\CHOLECALCIFEROL
     Dosage: FORMULATION: CHEWABLE OR SUCKABLE TABLET, 1 MORNING TABLET, 1 DF, QD, STRENGTH 500MG/440 IU
     Route: 048
  3. KEYTRUDA [Suspect]
     Active Substance: PEMBROLIZUMAB
     Indication: METASTATIC MALIGNANT MELANOMA
     Dosage: 6 CYDES OF PEMBROLIZUMAB (KEYTRUDA), 1 DF, EVERY 3 WEEKS
     Route: 042
     Dates: start: 20161028, end: 20170317
  4. SERESTA [Concomitant]
     Active Substance: OXAZEPAM
     Dosage: 20 MG, QD
     Route: 048
  5. LEVOTHYROX [Concomitant]
     Active Substance: LEVOTHYROXINE
     Dosage: FORMULATION: SCORED TABLET, 150MICROGRAM, FROM MONDAY TO FRIDAY
     Route: 048
  6. PRIMPERAN [Concomitant]
     Active Substance: METOCLOPRAMIDE HYDROCHLORIDE
     Dosage: 10 MG, PRN, FORMULATION: SCORED TABLET
     Route: 048
  7. LEVOTHYROX [Concomitant]
     Active Substance: LEVOTHYROXINE
     Dosage: FORMULATION: SCORED TABLET, 125MICROGRAM, ON SATURDAY AND SUNDAY
     Route: 048
  8. PANTOPRAZOLE [Concomitant]
     Active Substance: PANTOPRAZOLE
     Dosage: 20 MG, QD
     Route: 048

REACTIONS (1)
  - Aplasia pure red cell [Recovering/Resolving]

NARRATIVE: CASE EVENT DATE: 20170317
